FAERS Safety Report 8977797 (Version 12)
Quarter: 2014Q1

REPORT INFORMATION
  Report Type: Report from Study
  Country: US (occurrence: US)
  Receive Date: 20121219
  Receipt Date: 20140305
  Transmission Date: 20141002
  Serious: Yes (Death, Hospitalization)
  Sender: FDA-Public Use
  Company Number: US-ACTELION-A-NJ2012-76455

PATIENT
  Age: 75 Year
  Sex: Female

DRUGS (13)
  1. TRACLEER [Suspect]
     Indication: PULMONARY ARTERIAL HYPERTENSION
     Dosage: 125 QD
     Route: 048
     Dates: start: 201301, end: 20140216
  2. TRACLEER [Suspect]
     Dosage: 125 MG, BID
     Route: 048
     Dates: start: 200907, end: 201301
  3. VENTAVIS [Suspect]
     Indication: PULMONARY ARTERIAL HYPERTENSION
     Dosage: 5 UNK, 7 TIMES/DAY
     Route: 055
     Dates: start: 201101
  4. LOSARTAN [Concomitant]
     Dosage: 100 MG, QD
  5. METFORMIN [Concomitant]
  6. DILTIAZEM [Concomitant]
     Dosage: 240 MG, QD
  7. GLIPIZIDE [Concomitant]
     Dosage: 5 MG, QD
  8. SIMVASTIN [Concomitant]
     Dosage: 40 MG, UNK
  9. LEVOTHYROXINE [Concomitant]
     Dosage: 75 MCG, QD
     Dates: start: 2011
  10. BABY ASPIRIN [Concomitant]
     Dosage: 81 MG, QD
     Dates: start: 2012
  11. METOPROLOL [Concomitant]
     Dosage: 25 MG, BID
     Dates: start: 2013
  12. TRAMADOL [Concomitant]
     Dosage: 50 MG, QID
     Dates: start: 2013
  13. AMITRIPTYLINE HCL [Concomitant]
     Dosage: 25 MG, QD
     Dates: start: 2013

REACTIONS (20)
  - Death [Fatal]
  - Diabetes mellitus [Unknown]
  - Aspiration [Unknown]
  - Urinary tract infection [Not Recovered/Not Resolved]
  - Abdominal pain [Not Recovered/Not Resolved]
  - Blood potassium decreased [Unknown]
  - Blood magnesium decreased [Unknown]
  - Ammonia [Unknown]
  - Pulmonary arterial hypertension [Unknown]
  - Cerebrovascular accident [Recovering/Resolving]
  - Anaemia [Unknown]
  - Dyspnoea [Unknown]
  - Hypotension [Not Recovered/Not Resolved]
  - Syncope [Not Recovered/Not Resolved]
  - Asthenia [Recovering/Resolving]
  - Malaise [Recovering/Resolving]
  - Bladder disorder [Unknown]
  - Cough [Unknown]
  - Somnolence [Unknown]
  - Drug dose omission [Unknown]
